FAERS Safety Report 5563701-8 (Version None)
Quarter: 2007Q4

REPORT INFORMATION
  Report Type: 
  Country: None (occurrence: None)
  Receive Date: 20071214
  Receipt Date: 20071214
  Transmission Date: 20080405
  Serious: Yes (Other)
  Sender: FDA-Public Use
  Company Number: None

PATIENT
  Age: 61 Year
  Sex: Female
  Weight: 78.4723 kg

DRUGS (1)
  1. COREG [Suspect]
     Indication: HYPERTENSION
     Dosage: 6.25MG BID P.O.
     Route: 048
     Dates: start: 20071011, end: 20071205

REACTIONS (2)
  - CELLULITIS [None]
  - OEDEMA PERIPHERAL [None]
